FAERS Safety Report 12663016 (Version 1)
Quarter: 2016Q3

REPORT INFORMATION
  Report Type: Spontaneous
  Country: US (occurrence: None)
  Receive Date: 20160817
  Receipt Date: 20160817
  Transmission Date: 20161109
  Serious: Yes (Hospitalization)
  Sender: FDA-Public Use
  Company Number: None

PATIENT
  Age: 13 Year
  Sex: Male
  Weight: 66 kg

DRUGS (5)
  1. MORPHINE [Concomitant]
     Active Substance: MORPHINE
  2. ACYCLOVIR. [Concomitant]
     Active Substance: ACYCLOVIR
  3. PROMACTA [Suspect]
     Active Substance: ELTROMBOPAG OLAMINE
     Indication: IMMUNE THROMBOCYTOPENIC PURPURA
     Route: 048
     Dates: start: 20160501, end: 20160811
  4. MONTELUKAST [Concomitant]
     Active Substance: MONTELUKAST SODIUM
  5. FIDAMOXACIN [Concomitant]

REACTIONS (5)
  - Pyrexia [None]
  - Platelet count increased [None]
  - Clostridium difficile infection [None]
  - Vomiting [None]
  - Diarrhoea [None]

NARRATIVE: CASE EVENT DATE: 20160811
